FAERS Safety Report 6329051-7 (Version None)
Quarter: 2009Q3

REPORT INFORMATION
  Report Type: 
  Country: None (occurrence: None)
  Receive Date: 20090826
  Receipt Date: 20090817
  Transmission Date: 20100115
  Serious: Yes (Hospitalization)
  Sender: FDA-Public Use
  Company Number: PHHY2009BR33724

PATIENT
  Age: 7 Year
  Sex: Female

DRUGS (5)
  1. SANDIMMUNE [Suspect]
     Indication: RHEUMATOID ARTHRITIS
     Dosage: 0.5 ML, Q12H
     Route: 048
     Dates: start: 20090401
  2. NAPROXEN [Concomitant]
     Indication: JUVENILE ARTHRITIS
     Dosage: 2 TABLETS DAILY
     Route: 048
     Dates: start: 20090201
  3. LABEL [Concomitant]
     Dosage: 2 TABLETS DAILY
     Route: 048
     Dates: start: 20090201
  4. ACIDO FOLICO [Concomitant]
     Route: 048
  5. METHOTREXATE [Concomitant]
     Indication: JUVENILE ARTHRITIS
     Dosage: 0.9 ML WEEKLY
     Route: 058
     Dates: start: 20090201

REACTIONS (3)
  - GASTRIC DISORDER [None]
  - NAUSEA [None]
  - VOMITING [None]
